FAERS Safety Report 18910890 (Version 1)
Quarter: 2021Q1

REPORT INFORMATION
  Report Type: Spontaneous
  Country: US (occurrence: US)
  Receive Date: 20210218
  Receipt Date: 20210218
  Transmission Date: 20210420
  Serious: No
  Sender: FDA-Public Use
  Company Number: US-PFIZER INC-2021148973

PATIENT
  Sex: Female

DRUGS (4)
  1. MACRODANTIN [Suspect]
     Active Substance: NITROFURANTOIN
     Dosage: UNK
  2. CEPHALEXIN [CEFALEXIN] [Suspect]
     Active Substance: CEPHALEXIN
     Dosage: UNK
  3. CIPROFLOXACIN. [Suspect]
     Active Substance: CIPROFLOXACIN
     Dosage: UNK
  4. CHLORHEXIDINE GLUCONATE. [Suspect]
     Active Substance: CHLORHEXIDINE GLUCONATE
     Dosage: UNK

REACTIONS (1)
  - Rash [Unknown]
